FAERS Safety Report 9247445 (Version 2)
Quarter: 2013Q2

REPORT INFORMATION
  Report Type: Spontaneous
  Country: US (occurrence: US)
  Receive Date: 20130423
  Receipt Date: 20130423
  Transmission Date: 20140414
  Serious: No
  Sender: FDA-Public Use
  Company Number: US-MYLANLABS-2013S1003193

PATIENT
  Age: 72 Year
  Sex: Female

DRUGS (4)
  1. LORAZEPAM TABLETS, USP [Suspect]
     Indication: ANXIETY
     Dosage: 1/2 TO 1 TABLET - NOT TO EXCEED 3MG PER DAY.
     Route: 048
     Dates: start: 20130208
  2. LORAZEPAM TABLETS, USP [Suspect]
     Indication: ANXIETY
     Route: 048
     Dates: start: 20130208
  3. LORAZEPAM TABLETS, USP [Suspect]
     Indication: ANXIETY
     Route: 048
  4. REMERON [Concomitant]
     Dosage: TAKEN FOR 7 YEARS

REACTIONS (5)
  - Drug ineffective [Not Recovered/Not Resolved]
  - Anxiety [Not Recovered/Not Resolved]
  - Thirst [Not Recovered/Not Resolved]
  - Abnormal dreams [Not Recovered/Not Resolved]
  - Abdominal discomfort [Not Recovered/Not Resolved]
